FAERS Safety Report 12615893 (Version 2)
Quarter: 2016Q3

REPORT INFORMATION
  Report Type: Report from Study
  Country: IN (occurrence: IN)
  Receive Date: 20160802
  Receipt Date: 20160812
  Transmission Date: 20161109
  Serious: Yes (Hospitalization)
  Sender: FDA-Public Use
  Company Number: IN-PFIZER INC-2016310998

PATIENT
  Age: 57 Year
  Sex: Male
  Weight: 59.7 kg

DRUGS (5)
  1. PF-06439535 [Suspect]
     Active Substance: INVESTIGATIONAL PRODUCT
     Dosage: 900 MG, EVERY 3 WEEKS (EVERY 21 DAYS)
     Dates: start: 20160531
  2. CARBOPLATIN. [Suspect]
     Active Substance: CARBOPLATIN
     Indication: NON-SMALL CELL LUNG CANCER
     Dosage: 653.52 MG, EVERY 3 WEEKS
     Route: 042
     Dates: start: 20160531, end: 20160531
  3. PF-06439535 [Suspect]
     Active Substance: INVESTIGATIONAL PRODUCT
     Indication: NON-SMALL CELL LUNG CANCER
     Dosage: 900 MG, CYCLIC, EVERY 21 DAYS
     Route: 042
     Dates: start: 20160509
  4. PACLITAXEL. [Suspect]
     Active Substance: PACLITAXEL
     Indication: NON-SMALL CELL LUNG CANCER
     Dosage: 342 MG, EVERY 3 WEEKS
     Route: 042
     Dates: start: 20160531, end: 20160531
  5. GLIBENCLAMIDE [Concomitant]
     Active Substance: GLYBURIDE
     Indication: DIABETES MELLITUS
     Dosage: 2.5 MG, 2X/DAY
     Route: 048
     Dates: start: 2008, end: 20160509

REACTIONS (1)
  - Sinusitis [Recovered/Resolved]

NARRATIVE: CASE EVENT DATE: 20160620
